FAERS Safety Report 5961516-X (Version None)
Quarter: 2008Q4

REPORT INFORMATION
  Report Type: 
  Country: None (occurrence: None)
  Receive Date: 20081121
  Receipt Date: 20081110
  Transmission Date: 20090506
  Serious: Yes (Hospitalization)
  Sender: FDA-Public Use
  Company Number: GB-WATSON-2008-06721

PATIENT
  Age: 33 Year
  Sex: Female

DRUGS (3)
  1. FORTAMET [Suspect]
     Indication: GESTATIONAL DIABETES
     Dosage: 500 MG, BID
     Route: 048
  2. ETHANOL [Suspect]
     Indication: DRUG USE FOR UNKNOWN INDICATION
     Dosage: UNK
     Route: 048
  3. COCAINE [Suspect]
     Indication: DRUG USE FOR UNKNOWN INDICATION
     Dosage: UNK
     Route: 065

REACTIONS (2)
  - INTRA-UTERINE DEATH [None]
  - LACTIC ACIDOSIS [None]
